FAERS Safety Report 4578190-X (Version None)
Quarter: 2005Q1

REPORT INFORMATION
  Report Type: 
  Country: None (occurrence: None)
  Receive Date: 20050209
  Receipt Date: 20050125
  Transmission Date: 20050727
  Serious: Yes (Hospitalization, Other)
  Sender: FDA-Public Use
  Company Number: US_0502111632

PATIENT
  Age: 72 Year
  Sex: Male

DRUGS (17)
  1. CYMBALTA [Suspect]
     Indication: DIABETIC NEUROPATHY
     Dosage: 30 MG DAY
     Dates: start: 20050112, end: 20050112
  2. HUMULIN N [Concomitant]
  3. DARVOCET-N 100 [Concomitant]
  4. ASPIRIN [Concomitant]
  5. ATENOLOL [Concomitant]
  6. ALLOPURINOL [Concomitant]
  7. ISOSORBIDE MONONITRATE [Concomitant]
  8. LASIX [Concomitant]
  9. METOLAZONE [Concomitant]
  10. OMEPRAZOLE [Concomitant]
  11. PLAVIX [Concomitant]
  12. PROCRIT (EPOETIN ALFA) [Concomitant]
  13. ROSIGLITAZONE MALEATE [Concomitant]
  14. TEMAZEPAM [Concomitant]
  15. ZOCOR (SIMVASTATIN RATIOPHARM) [Concomitant]
  16. ELAVIL [Concomitant]
  17. PHENYTOIN SODIUM CAP [Concomitant]

REACTIONS (3)
  - ANGINA PECTORIS [None]
  - MYOCARDIAL INFARCTION [None]
  - MYOCARDIAL ISCHAEMIA [None]
